FAERS Safety Report 15804113 (Version 5)
Quarter: 2019Q1

REPORT INFORMATION
  Report Type: Spontaneous
  Country: US (occurrence: US)
  Receive Date: 20190109
  Receipt Date: 20190305
  Transmission Date: 20190417
  Serious: Yes (Hospitalization)
  Sender: FDA-Public Use
  Company Number: US-ACTELION-A-NJ2018-183145

PATIENT
  Age: 43 Year
  Sex: Female
  Weight: 110.66 kg

DRUGS (6)
  1. ADCIRCA [Concomitant]
     Active Substance: TADALAFIL
  2. XARELTO [Concomitant]
     Active Substance: RIVAROXABAN
  3. VELETRI [Suspect]
     Active Substance: EPOPROSTENOL
     Indication: PULMONARY HYPERTENSION
     Dosage: 37 NG/KG, PER MIN
     Route: 042
  4. VELETRI [Suspect]
     Active Substance: EPOPROSTENOL
     Dosage: 31 NG/KG, PER MIN
     Route: 042
  5. OPSUMIT [Suspect]
     Active Substance: MACITENTAN
     Indication: PULMONARY HYPERTENSION
     Dosage: 10 MG, QD
     Route: 048
     Dates: start: 20170210
  6. REMODULIN [Suspect]
     Active Substance: TREPROSTINIL
     Indication: PULMONARY HYPERTENSION
     Dosage: 0.038 NG/KG, PER MIN
     Route: 058

REACTIONS (20)
  - Sepsis [Unknown]
  - Catheter management [Unknown]
  - Staphylococcus test positive [Unknown]
  - Device related infection [Unknown]
  - Staphylococcal bacteraemia [Unknown]
  - Blood fibrinogen increased [Unknown]
  - Catheter site discharge [Unknown]
  - Pruritus [Not Recovered/Not Resolved]
  - Nasal congestion [Not Recovered/Not Resolved]
  - Nausea [Unknown]
  - Clostridium test positive [Unknown]
  - Multiple organ dysfunction syndrome [Unknown]
  - Catheter site infection [Unknown]
  - Arthralgia [Unknown]
  - Fibrin D dimer increased [Unknown]
  - Injection site pain [Unknown]
  - Rash generalised [Unknown]
  - Therapy change [Unknown]
  - Administration site pain [Not Recovered/Not Resolved]
  - Oedema peripheral [Not Recovered/Not Resolved]

NARRATIVE: CASE EVENT DATE: 20181222
